FAERS Safety Report 22102201 (Version 10)
Quarter: 2024Q4

REPORT INFORMATION
  Report Type: Spontaneous
  Country: CA (occurrence: CA)
  Receive Date: 20230316
  Receipt Date: 20241107
  Transmission Date: 20250114
  Serious: Yes (Hospitalization, Other)
  Sender: CELLTRION
  Company Number: CA-CELLTRION INC.-2022CA015700

PATIENT

DRUGS (19)
  1. INFLECTRA [Suspect]
     Active Substance: INFLIXIMAB-DYYB
     Indication: Crohn^s disease
     Dosage: 400 MG, INDUCTION AT Q 0,2,6 THEN EVERY 8 WEEKS
     Route: 042
     Dates: start: 20220524
  2. INFLECTRA [Suspect]
     Active Substance: INFLIXIMAB-DYYB
     Dosage: 400 MG, INDUCTION AT Q 0,2,6 THEN EVERY 8 WEEKS
     Route: 042
     Dates: start: 20220707
  3. INFLECTRA [Suspect]
     Active Substance: INFLIXIMAB-DYYB
     Dosage: 400 MG, INDUCTION AT Q 0,2,6 THEN EVERY 8 WEEKS
     Route: 042
     Dates: start: 20220830
  4. INFLECTRA [Suspect]
     Active Substance: INFLIXIMAB-DYYB
     Dosage: 400 MG, INDUCTION AT Q 0,2,6 THEN EVERY 8 WEEKS
     Route: 042
     Dates: start: 20221025
  5. INFLECTRA [Suspect]
     Active Substance: INFLIXIMAB-DYYB
     Dosage: 400 MG, INDUCTION AT Q 0,2,6 THEN EVERY 8 WEEKS
     Route: 042
     Dates: start: 20221221, end: 20221221
  6. INFLECTRA [Suspect]
     Active Substance: INFLIXIMAB-DYYB
     Dosage: 7.5 MG/KG, EVERY 8 WEEKS
     Route: 042
     Dates: start: 20230215
  7. INFLECTRA [Suspect]
     Active Substance: INFLIXIMAB-DYYB
     Dosage: 7.5 MG/KG, EVERY 8 WEEKS
     Route: 042
     Dates: start: 20230412
  8. INFLECTRA [Suspect]
     Active Substance: INFLIXIMAB-DYYB
     Dosage: 700 MG, AFTER 8 WEEKS
     Route: 042
     Dates: start: 20230607
  9. INFLECTRA [Suspect]
     Active Substance: INFLIXIMAB-DYYB
     Dosage: 700 MG, AFTER 8 WEEKS AND 2 DAYS
     Route: 042
     Dates: start: 20230804
  10. INFLECTRA [Suspect]
     Active Substance: INFLIXIMAB-DYYB
     Dosage: 700 MG, AFTER 8 WEEKS
     Route: 042
     Dates: start: 20230929
  11. INFLECTRA [Suspect]
     Active Substance: INFLIXIMAB-DYYB
     Dosage: 694 MG (7.5MG/KG), AFTER 8 WEEKS
     Route: 042
     Dates: start: 20231124
  12. INFLECTRA [Suspect]
     Active Substance: INFLIXIMAB-DYYB
     Dosage: 7.5 MG/KG, EVERY 8 WEEKS (1 DF)
     Route: 042
     Dates: start: 20240119
  13. INFLECTRA [Suspect]
     Active Substance: INFLIXIMAB-DYYB
     Dosage: 10 MG/KG (942MG), AFTER 8 WEEKS
     Route: 042
     Dates: start: 20240315
  14. INFLECTRA [Suspect]
     Active Substance: INFLIXIMAB-DYYB
     Dosage: 983 MG, EVERY 8 WEEKS
     Route: 042
     Dates: start: 20240510
  15. INFLECTRA [Suspect]
     Active Substance: INFLIXIMAB-DYYB
     Dosage: 10 MG/KG, EVERY 8 WEEKS
     Route: 042
     Dates: start: 20240705
  16. INFLECTRA [Suspect]
     Active Substance: INFLIXIMAB-DYYB
     Dosage: 940 MG (10 MG/KG), EVERY 8 WEEKS
     Route: 042
     Dates: start: 20240830
  17. INFLECTRA [Suspect]
     Active Substance: INFLIXIMAB-DYYB
     Dosage: 960 MG (10 MG/KG), AFTER 8 WEEKS (EVERY 4 WEEK)
     Route: 042
     Dates: start: 20241025
  18. CLONAZEPAM [Concomitant]
     Active Substance: CLONAZEPAM
     Dosage: 1 DF
     Route: 065
  19. IMURAN [Concomitant]
     Active Substance: AZATHIOPRINE
     Dosage: 1 DF
     Route: 065
     Dates: start: 20220328

REACTIONS (16)
  - Anal fistula [Recovering/Resolving]
  - Condition aggravated [Recovered/Resolved]
  - Condition aggravated [Not Recovered/Not Resolved]
  - Abscess [Recovered/Resolved]
  - Fistula [Unknown]
  - Therapeutic response shortened [Unknown]
  - Oropharyngeal pain [Not Recovered/Not Resolved]
  - Abdominal symptom [Unknown]
  - Arthralgia [Unknown]
  - Laryngitis [Not Recovered/Not Resolved]
  - Nasopharyngitis [Unknown]
  - Poor venous access [Unknown]
  - Chest pain [Unknown]
  - Weight increased [Unknown]
  - Off label use [Unknown]
  - Inappropriate schedule of product administration [Unknown]

NARRATIVE: CASE EVENT DATE: 20220101
